FAERS Safety Report 9064290 (Version 2)
Quarter: 2013Q1

REPORT INFORMATION
  Report Type: Spontaneous
  Country: US (occurrence: US)
  Receive Date: 20130122
  Receipt Date: 20130122
  Transmission Date: 20140127
  Serious: No
  Sender: FDA-Public Use
  Company Number: US-009507513-1301USA009731

PATIENT
  Sex: Female
  Weight: 64.4 kg

DRUGS (4)
  1. RIBAVIRIN [Suspect]
     Indication: HEPATITIS C
     Dosage: 2 IN THE MORNING AND 3 AT NIGHT
     Route: 048
     Dates: start: 20121116
  2. RIBAVIRIN [Suspect]
     Dosage: 2 IN THE MORNING AND ONE AT NIGHT
     Route: 048
  3. PEGASYS [Suspect]
     Indication: HEPATITIS C
     Dosage: UNK
     Dates: start: 20121116
  4. VICTRELIS [Suspect]
     Indication: HEPATITIS C
     Dosage: UNK
     Route: 048
     Dates: start: 20121214

REACTIONS (19)
  - Memory impairment [Unknown]
  - Tremor [Unknown]
  - Dry mouth [Unknown]
  - Asthenia [Unknown]
  - Crying [Unknown]
  - Tremor [Unknown]
  - Nervousness [Unknown]
  - Depressed mood [Unknown]
  - Feeling cold [Unknown]
  - Pyrexia [Unknown]
  - Weight increased [Unknown]
  - Memory impairment [Unknown]
  - Asthenia [Unknown]
  - Dry mouth [Unknown]
  - Insomnia [Unknown]
  - Visual acuity reduced [Unknown]
  - White blood cell count decreased [Unknown]
  - Platelet count decreased [Unknown]
  - Anaemia [Unknown]
